FAERS Safety Report 13269606 (Version 10)
Quarter: 2020Q1

REPORT INFORMATION
  Report Type: Report from Study
  Country: FR (occurrence: FR)
  Receive Date: 20170224
  Receipt Date: 20200117
  Transmission Date: 20200409
  Serious: Yes (Death, Life-Threatening, Hospitalization, Disabling, Other)
  Sender: FDA-Public Use
  Company Number: PHHY2016FR170079

PATIENT
  Age: 65 Year
  Sex: Male
  Weight: 72 kg

DRUGS (35)
  1. ELISOR [Concomitant]
     Active Substance: PRAVASTATIN SODIUM
     Indication: PRODUCT USED FOR UNKNOWN INDICATION
     Dosage: 10 MG, UNK
     Route: 065
  2. DUROGESIC [Concomitant]
     Active Substance: FENTANYL
     Indication: PRODUCT USED FOR UNKNOWN INDICATION
     Dosage: 25UG , EVERY 3 DAYS
     Route: 065
  3. ADVAGRAF [Concomitant]
     Active Substance: TACROLIMUS
     Indication: IMMUNOSUPPRESSANT DRUG THERAPY
     Dosage: 4 MG, QD
     Route: 065
     Dates: start: 20160729, end: 20160830
  4. CERTICAN [Suspect]
     Active Substance: EVEROLIMUS
     Dosage: 3.5 MG, UNK
     Route: 065
     Dates: start: 20171116
  5. CERTICAN [Suspect]
     Active Substance: EVEROLIMUS
     Dosage: 1.75 MG, BID (IN THE MORNING AND IN THE EVENING)
     Route: 065
  6. CERTICAN [Suspect]
     Active Substance: EVEROLIMUS
     Dosage: 3.5 MG, UNK
     Route: 048
     Dates: start: 20181204
  7. MYFORTIC [Suspect]
     Active Substance: MYCOPHENOLATE SODIUM
     Indication: IMMUNOSUPPRESSANT DRUG THERAPY
     Dosage: 720 MG, QD
     Route: 065
     Dates: start: 20150530, end: 20161107
  8. MYFORTIC [Suspect]
     Active Substance: MYCOPHENOLATE SODIUM
     Dosage: 540 MG, QD
     Route: 065
     Dates: start: 20161108, end: 20161108
  9. DUROGESIC [Concomitant]
     Active Substance: FENTANYL
     Dosage: 37 UG, EVERY 3 DAYS
     Route: 065
     Dates: start: 20161019
  10. OXYNORMORO [Concomitant]
     Active Substance: OXYCODONE HYDROCHLORIDE
     Indication: PRODUCT USED FOR UNKNOWN INDICATION
     Dosage: 10 MG, UPTO 6 A DAY IF NEEDED
     Route: 065
  11. LERCANIDIPINE [Concomitant]
     Active Substance: LERCANIDIPINE
     Indication: PRODUCT USED FOR UNKNOWN INDICATION
     Dosage: 1 DF (20 MG), QD (IN THE EVENING)
  12. CERTICAN [Suspect]
     Active Substance: EVEROLIMUS
     Dosage: 2 MG, UNK
     Route: 065
     Dates: start: 20170818, end: 20171115
  13. NEORAL [Suspect]
     Active Substance: CYCLOSPORINE
     Indication: LIVER TRANSPLANT
     Dosage: 200 MG, QD
     Route: 048
     Dates: start: 20161109, end: 20170413
  14. BISOPROLOL [Concomitant]
     Active Substance: BISOPROLOL
     Indication: PRODUCT USED FOR UNKNOWN INDICATION
     Dosage: 10 MG, QD (IN THE MORNING)
     Route: 065
  15. MORPHINE SULFATE. [Concomitant]
     Active Substance: MORPHINE SULFATE
     Indication: PRODUCT USED FOR UNKNOWN INDICATION
     Dosage: 10 MG, UNK(UPTO 6 A DAY IF NEEDED)
     Route: 065
     Dates: start: 20161020
  16. PHOSPHONEUROS [Concomitant]
     Active Substance: CALCIUM PHOSPHATE, DIBASIC, ANHYDROUS\MAGNESIUM GLYCEROPHOSPHATE\PHOSPHORIC ACID\SODIUM PHOSPHATE, DIBASIC
     Indication: PRODUCT USED FOR UNKNOWN INDICATION
     Dosage: 75 DROPS, BID
     Route: 065
  17. LANSOPRAZOLE. [Concomitant]
     Active Substance: LANSOPRAZOLE
     Indication: PRODUCT USED FOR UNKNOWN INDICATION
     Dosage: 30 MG, QD
     Route: 065
  18. CERTICAN [Suspect]
     Active Substance: EVEROLIMUS
     Indication: IMMUNOSUPPRESSANT DRUG THERAPY
     Dosage: 1.5 MG, UNK
     Route: 065
     Dates: start: 20170413, end: 20170817
  19. NEORAL [Suspect]
     Active Substance: CYCLOSPORINE
     Indication: IMMUNOSUPPRESSANT DRUG THERAPY
     Dosage: 150 MG, UNK
     Route: 065
     Dates: start: 20170414, end: 20170427
  20. INEXIUM [Concomitant]
     Active Substance: ESOMEPRAZOLE
     Indication: PRODUCT USED FOR UNKNOWN INDICATION
     Dosage: 40 MG, QD
     Route: 065
  21. ULCAR [Concomitant]
     Active Substance: SUCRALFATE
     Indication: PRODUCT USED FOR UNKNOWN INDICATION
     Dosage: 3 DF, DAILY
     Route: 065
  22. FORTIMEL [Concomitant]
     Active Substance: DIETARY SUPPLEMENT
     Indication: PRODUCT USED FOR UNKNOWN INDICATION
     Dosage: UNK UNK, QD
     Route: 065
  23. ENOXAPARIN [Concomitant]
     Active Substance: ENOXAPARIN
     Indication: PRODUCT USED FOR UNKNOWN INDICATION
     Dosage: 4000 IU, QD
     Route: 058
     Dates: start: 20161020
  24. ADVAGRAF [Concomitant]
     Active Substance: TACROLIMUS
     Dosage: 4.5 MG, QD
     Route: 065
     Dates: start: 20160831
  25. LERCAN [Concomitant]
     Active Substance: LERCANIDIPINE
     Indication: PRODUCT USED FOR UNKNOWN INDICATION
     Dosage: 20 MG, QD
     Route: 065
  26. PRIMPERAN [Concomitant]
     Active Substance: METOCLOPRAMIDE HYDROCHLORIDE
     Indication: PRODUCT USED FOR UNKNOWN INDICATION
     Dosage: 10 MG, (3 DF IF NEEDED)
     Route: 065
  27. MYCOPHENOLIC ACID. [Concomitant]
     Active Substance: MYCOPHENOLIC ACID
     Indication: PRODUCT USED FOR UNKNOWN INDICATION
     Dosage: 1 DF, BID (IN THE MORNING AND IN THE NIGHT)
     Route: 065
  28. PRAVASTATIN. [Concomitant]
     Active Substance: PRAVASTATIN
     Indication: PRODUCT USED FOR UNKNOWN INDICATION
     Dosage: 1 DF (20 MG), QD (IN THE EVENING)
  29. ESOMEPRAZOLE. [Concomitant]
     Active Substance: ESOMEPRAZOLE MAGNESIUM
     Indication: PRODUCT USED FOR UNKNOWN INDICATION
     Dosage: 1 DF (40 MG), QD (IN TH EVENING)
     Route: 065
  30. CERTICAN [Suspect]
     Active Substance: EVEROLIMUS
     Indication: LIVER TRANSPLANT
     Dosage: 3.5 MG, QD
     Route: 048
     Dates: start: 20140425, end: 20161108
  31. MYFORTIC [Suspect]
     Active Substance: MYCOPHENOLATE SODIUM
     Indication: LIVER TRANSPLANT
     Dosage: 1440 MG, QD
     Route: 065
     Dates: start: 20140508, end: 20140529
  32. MYFORTIC [Suspect]
     Active Substance: MYCOPHENOLATE SODIUM
     Dosage: 360 MG, QD
     Route: 048
     Dates: start: 20161109, end: 20170721
  33. ENTERAL [Concomitant]
     Indication: PRODUCT USED FOR UNKNOWN INDICATION
     Dosage: 1 L, UNK
     Route: 065
     Dates: start: 201610
  34. EVEROLIMUS. [Concomitant]
     Active Substance: EVEROLIMUS
     Indication: PRODUCT USED FOR UNKNOWN INDICATION
     Dosage: 1 DF (0.75 MG), BID (IN THE MORNING AND IN THE EVENING)
     Route: 065
  35. ESOMEPRAZOLE. [Concomitant]
     Active Substance: ESOMEPRAZOLE MAGNESIUM
     Dosage: 20 MG, QD (IN THE EVENING)
     Route: 065

REACTIONS (68)
  - General physical health deterioration [Fatal]
  - Oesophageal carcinoma [Recovered/Resolved]
  - Acute kidney injury [Recovered/Resolved]
  - Mouth ulceration [Unknown]
  - Nausea [Recovered/Resolved]
  - Dysuria [Recovered/Resolved]
  - Atelectasis [Recovered/Resolved]
  - Productive cough [Recovered/Resolved]
  - Ear pain [Recovered/Resolved]
  - Oral candidiasis [Recovered/Resolved]
  - Nausea [Recovered/Resolved]
  - Bronchitis [Recovered/Resolved]
  - Hypokalaemia [Recovered/Resolved]
  - Neutropenia [Recovered/Resolved]
  - Nausea [Unknown]
  - Anaemia [Recovered/Resolved]
  - Oliguria [Recovered/Resolved]
  - Acquired oesophageal web [Recovered/Resolved]
  - Influenza [Recovered/Resolved]
  - Hypokalaemia [Recovered/Resolved]
  - Oesophageal ulcer [Recovered/Resolved]
  - Amyotrophy [Not Recovered/Not Resolved]
  - Hyperthermia [Recovered/Resolved]
  - Thyroid mass [Not Recovered/Not Resolved]
  - Urinary tract infection [Recovered/Resolved]
  - Atrophy [Not Recovered/Not Resolved]
  - Procedural pain [Recovered/Resolved]
  - Salivary gland disorder [Not Recovered/Not Resolved]
  - Oesophagitis [Recovering/Resolving]
  - Dysphagia [Recovered/Resolved]
  - Neuropathy peripheral [Not Recovered/Not Resolved]
  - Oesophageal fistula [Recovered/Resolved]
  - Anastomotic fistula [Recovered/Resolved]
  - Vomiting [Unknown]
  - Dyspepsia [Recovered/Resolved]
  - Pyrexia [Recovered/Resolved]
  - Neck pain [Recovered/Resolved]
  - Odynophagia [Not Recovered/Not Resolved]
  - Squamous cell carcinoma of the hypopharynx [Fatal]
  - Mucosal dryness [Unknown]
  - Ventricular extrasystoles [Recovered/Resolved]
  - Asthenia [Not Recovered/Not Resolved]
  - Pleural effusion [Recovered/Resolved]
  - Dysphagia [Not Recovered/Not Resolved]
  - Anaemia [Recovered/Resolved]
  - Pharyngitis [Recovered/Resolved]
  - Skin disorder [Recovered/Resolved]
  - Squamous cell carcinoma [Recovered/Resolved with Sequelae]
  - Odynophagia [Recovered/Resolved]
  - Acute kidney injury [Recovered/Resolved]
  - Cytomegalovirus infection [Recovered/Resolved]
  - Asthenia [Recovered/Resolved]
  - Salivary gland disorder [Recovered/Resolved]
  - Dyspnoea [Fatal]
  - Oesophageal stenosis [Not Recovered/Not Resolved]
  - Leukopenia [Recovered/Resolved]
  - Hiatus hernia [Recovered/Resolved]
  - Mucosal inflammation [Recovered/Resolved]
  - Secretion discharge [Recovered/Resolved]
  - Dry mouth [Not Recovered/Not Resolved]
  - Diarrhoea [Recovered/Resolved]
  - Dyspnoea [Recovered/Resolved]
  - Thirst [Recovered/Resolved]
  - Pancytopenia [Recovered/Resolved]
  - Diarrhoea [Recovered/Resolved]
  - Cough [Recovered/Resolved]
  - Cell death [Not Recovered/Not Resolved]
  - Otitis media [Recovered/Resolved]

NARRATIVE: CASE EVENT DATE: 201604
